FAERS Safety Report 9707455 (Version 3)
Quarter: 2014Q2

REPORT INFORMATION
  Report Type: Spontaneous
  Country: GB (occurrence: None)
  Receive Date: 20131121
  Receipt Date: 20140610
  Transmission Date: 20141212
  Serious: Yes (Other)
  Sender: FDA-Public Use
  Company Number: 2013MPI00722

PATIENT
  Age: 28 Year
  Sex: Female

DRUGS (1)
  1. ADCETRIS [Suspect]
     Indication: HODGKIN^S DISEASE
     Dates: start: 201212, end: 201302

REACTIONS (3)
  - Neurological symptom [None]
  - Amnesia [None]
  - Confusional state [None]
